FAERS Safety Report 6844767-1 (Version None)
Quarter: 2010Q3

REPORT INFORMATION
  Report Type: 
  Country: None (occurrence: None)
  Receive Date: 20100715
  Receipt Date: 20100706
  Transmission Date: 20110219
  Serious: Yes (Hospitalization)
  Sender: FDA-Public Use
  Company Number: GXKR2010BR07490

PATIENT
  Age: 14 Year
  Sex: Male

DRUGS (6)
  1. ITRACONAZOLE [Suspect]
     Indication: PARACOCCIDIOIDES INFECTION
     Dosage: 200 MG, QD
     Route: 065
  2. ITRACONAZOLE [Suspect]
     Dosage: 300 MG/DAY
     Route: 065
  3. SULFADIAZINE (NGX) [Suspect]
     Indication: PARACOCCIDIOIDES INFECTION
     Dosage: 4 G, DAILY
     Route: 065
  4. SULFAMETHOXAZOLE AND TRIMETHOPRIM [Suspect]
     Indication: PARACOCCIDIOIDES INFECTION
     Dosage: 8 MG/KG, TID
     Route: 065
  5. AMPHOTERICIN B [Suspect]
     Indication: PARACOCCIDIOIDES INFECTION
     Route: 065
  6. AMPHOTERICIN B [Suspect]
     Dosage: LIPOSOMAL AMPHOTERICIN B: 4 MG/KG/DAY
     Route: 065

REACTIONS (8)
  - EOSINOPHILIA [None]
  - HYPERSENSITIVITY [None]
  - LYMPHADENOPATHY [None]
  - PARADOXICAL DRUG REACTION [None]
  - PURULENT DISCHARGE [None]
  - PYREXIA [None]
  - RASH [None]
  - WEIGHT DECREASED [None]
